FAERS Safety Report 9948717 (Version 1)
Quarter: 2014Q1

REPORT INFORMATION
  Report Type: Spontaneous
  Country: US (occurrence: None)
  Receive Date: 20140122
  Receipt Date: 20140122
  Transmission Date: 20141002
  Serious: Yes (Other)
  Sender: FDA-Public Use
  Company Number: AEGR000156

PATIENT
  Age: 45 Year
  Sex: Male
  Weight: 81.2 kg

DRUGS (4)
  1. JUXTAPID [Suspect]
     Dosage: 5 MG. QD, ORAL
     Route: 048
     Dates: start: 20130920, end: 20130921
  2. ZETIA (EZETIMIBE) [Concomitant]
  3. PRAVASTATIN (PRAVASTATIN) [Concomitant]
  4. NIACIN (NIACIN) [Concomitant]

REACTIONS (7)
  - Diarrhoea [None]
  - Abdominal pain upper [None]
  - Abdominal pain [None]
  - Nausea [None]
  - Vomiting [None]
  - Off label use [None]
  - Dizziness [None]
